FAERS Safety Report 23708241 (Version 2)
Quarter: 2024Q2

REPORT INFORMATION
  Report Type: Spontaneous
  Country: AU (occurrence: AU)
  Receive Date: 20240404
  Receipt Date: 20240408
  Transmission Date: 20240716
  Serious: Yes (Other)
  Sender: FDA-Public Use
  Company Number: AU-ABBVIE-5705488

PATIENT
  Age: 71 Year
  Sex: Female

DRUGS (4)
  1. VENETOCLAX [Suspect]
     Active Substance: VENETOCLAX
     Indication: Acute myeloid leukaemia
     Dosage: DURATION: 21 DAYS IN CYCLE 1
     Route: 048
  2. SIMVASTATIN [Concomitant]
     Active Substance: SIMVASTATIN
     Indication: Product used for unknown indication
  3. POSACONAZOLE [Concomitant]
     Active Substance: POSACONAZOLE
     Indication: Product used for unknown indication
  4. AZACITIDINE [Suspect]
     Active Substance: AZACITIDINE
     Indication: Acute myeloid leukaemia
     Route: 065

REACTIONS (8)
  - Acute kidney injury [Unknown]
  - Viral infection [Unknown]
  - Pyrexia [Unknown]
  - Liver injury [Recovered/Resolved]
  - Myositis [Recovering/Resolving]
  - Renal tubular necrosis [Unknown]
  - Necrotising myositis [Unknown]
  - Muscle atrophy [Recovering/Resolving]
